FAERS Safety Report 7557185-8 (Version None)
Quarter: 2011Q2

REPORT INFORMATION
  Report Type: 
  Country: None (occurrence: None)
  Receive Date: 20110620
  Receipt Date: 20110612
  Transmission Date: 20111010
  Serious: No
  Sender: FDA-Public Use
  Company Number: US-US-EMD SERONO, INC.-7060106

PATIENT
  Sex: Male

DRUGS (1)
  1. REBIF [Suspect]
     Indication: MULTIPLE SCLEROSIS
     Route: 058
     Dates: start: 20101217

REACTIONS (7)
  - SLEEP DISORDER [None]
  - BAND SENSATION [None]
  - ADVERSE DRUG REACTION [None]
  - NAUSEA [None]
  - CHILLS [None]
  - VOMITING [None]
  - DEHYDRATION [None]
